FAERS Safety Report 18689866 (Version 1)
Quarter: 2020Q4

REPORT INFORMATION
  Report Type: Spontaneous
  Country: MX (occurrence: MX)
  Receive Date: 20201231
  Receipt Date: 20201231
  Transmission Date: 20210114
  Serious: Yes (Disabling, Other)
  Sender: FDA-Public Use
  Company Number: MX-DSJP-DSU-2020-128829

PATIENT
  Sex: Female

DRUGS (2)
  1. DAFLON                             /00426001/ [Concomitant]
     Active Substance: DIOSMIN
     Indication: VARICOSE VEIN
     Dosage: 1 DF(TABLET), QD
     Route: 048
  2. ALMETEC CO [Suspect]
     Active Substance: HYDROCHLOROTHIAZIDE\OLMESARTAN MEDOXOMIL
     Indication: HYPERTENSION
     Dosage: 1 DF(40MG), QD
     Route: 048
     Dates: start: 2010

REACTIONS (7)
  - Bone pain [Not Recovered/Not Resolved]
  - Arthralgia [Not Recovered/Not Resolved]
  - Poor quality sleep [Unknown]
  - Burning sensation [Unknown]
  - Joint injury [Recovering/Resolving]
  - Fall [Unknown]
  - Vascular pain [Not Recovered/Not Resolved]

NARRATIVE: CASE EVENT DATE: 2020
